FAERS Safety Report 7607153-2 (Version None)
Quarter: 2011Q3

REPORT INFORMATION
  Report Type: 
  Country: None (occurrence: None)
  Receive Date: 20110713
  Receipt Date: 20110703
  Transmission Date: 20111222
  Serious: Yes (Death)
  Sender: FDA-Public Use
  Company Number: IT-BAXTER-2011BH022244

PATIENT
  Age: 76 Year
  Sex: Male

DRUGS (3)
  1. GEMCITABINE [Suspect]
     Indication: PERIPHERAL T-CELL LYMPHOMA UNSPECIFIED
     Route: 065
  2. IFOSFAMIDE [Suspect]
     Indication: PERIPHERAL T-CELL LYMPHOMA UNSPECIFIED
     Route: 065
  3. OXALIPLATIN [Suspect]
     Indication: PERIPHERAL T-CELL LYMPHOMA UNSPECIFIED
     Route: 065

REACTIONS (1)
  - SEPTIC SHOCK [None]
